FAERS Safety Report 16643357 (Version 5)
Quarter: 2019Q4

REPORT INFORMATION
  Report Type: Spontaneous
  Country: US (occurrence: US)
  Receive Date: 20190729
  Receipt Date: 20191209
  Transmission Date: 20200122
  Serious: No
  Sender: FDA-Public Use
  Company Number: US-PFIZER INC-2019320275

PATIENT
  Age: 77 Year
  Sex: Female

DRUGS (1)
  1. IBRANCE [Suspect]
     Active Substance: PALBOCICLIB
     Dosage: 100 MG, CYCLIC (DAILY WITH BREAKFAST FOR 21 DAYS THEN 7 DAYS OFF /1 CAP QD X 21D THEN 7D OFF)
     Route: 048

REACTIONS (3)
  - Neoplasm progression [Unknown]
  - Alopecia [Unknown]
  - Nausea [Unknown]
